FAERS Safety Report 6807065-8 (Version None)
Quarter: 2010Q2

REPORT INFORMATION
  Report Type: 
  Country: None (occurrence: None)
  Receive Date: 20100629
  Receipt Date: 20080701
  Transmission Date: 20101027
  Serious: No
  Sender: FDA-Public Use
  Company Number: US-PFIZER INC-2008055490

PATIENT
  Sex: Female
  Weight: 72.7 kg

DRUGS (2)
  1. XANAX [Suspect]
     Indication: ANXIETY
  2. CELLCEPT [Concomitant]

REACTIONS (3)
  - DIARRHOEA [None]
  - DYSGEUSIA [None]
  - VOMITING [None]
